FAERS Safety Report 21873756 (Version 1)
Quarter: 2023Q1

REPORT INFORMATION
  Report Type: Spontaneous
  Country: US (occurrence: None)
  Receive Date: 20230116
  Receipt Date: 20230116
  Transmission Date: 20230418
  Serious: Yes (Life-Threatening, Disabling, Other)
  Sender: FDA-Public Use
  Company Number: None

PATIENT
  Age: 43 Year
  Sex: Male
  Weight: 135 kg

DRUGS (4)
  1. MONTELUKAST [Suspect]
     Active Substance: MONTELUKAST SODIUM
     Indication: Respiration abnormal
     Dates: start: 20220920, end: 20221114
  2. APAP machine [Concomitant]
  3. VITAMINS [Concomitant]
     Active Substance: VITAMINS
  4. FISH OIL [Concomitant]
     Active Substance: FISH OIL

REACTIONS (8)
  - Hallucinations, mixed [None]
  - Hallucination, tactile [None]
  - Depression [None]
  - Suicidal ideation [None]
  - Disorientation [None]
  - Dysgraphia [None]
  - Reading disorder [None]
  - Memory impairment [None]

NARRATIVE: CASE EVENT DATE: 20221114
